FAERS Safety Report 5195410-1 (Version None)
Quarter: 2006Q4

REPORT INFORMATION
  Report Type: 
  Country: None (occurrence: None)
  Receive Date: 20061229
  Receipt Date: 20061220
  Transmission Date: 20070319
  Serious: Yes (Other)
  Sender: FDA-Public Use
  Company Number: US-PFIZER INC-2006155826

PATIENT
  Sex: Male

DRUGS (1)
  1. LYRICA [Suspect]
     Indication: PAIN

REACTIONS (8)
  - ABDOMINAL PAIN UPPER [None]
  - AGGRESSION [None]
  - DRUG ADMINISTRATION ERROR [None]
  - EPISTAXIS [None]
  - EUPHORIC MOOD [None]
  - HAEMORRHOIDAL HAEMORRHAGE [None]
  - OCULAR HYPERAEMIA [None]
  - WEIGHT INCREASED [None]
